FAERS Safety Report 5731399-1 (Version None)
Quarter: 2008Q2

REPORT INFORMATION
  Report Type: 
  Country: None (occurrence: None)
  Receive Date: 20080508
  Receipt Date: 20080428
  Transmission Date: 20081010
  Serious: Yes (Hospitalization, Other)
  Sender: FDA-Public Use
  Company Number: HQWYE073801MAY06

PATIENT
  Sex: Female

DRUGS (6)
  1. PREMPRO [Suspect]
  2. PROGESTERONE [Suspect]
  3. PROVERA [Suspect]
  4. ESTRACE [Suspect]
  5. PREMARIN [Suspect]
  6. MEDROXYPROGESTERONE ACETATE [Suspect]

REACTIONS (2)
  - BREAST CANCER [None]
  - SMEAR CERVIX ABNORMAL [None]
